FAERS Safety Report 7081025-7 (Version None)
Quarter: 2010Q4

REPORT INFORMATION
  Report Type: 
  Country: None (occurrence: None)
  Receive Date: 20101103
  Receipt Date: 20101021
  Transmission Date: 20110411
  Serious: Yes (Death)
  Sender: FDA-Public Use
  Company Number: US-BAYER-201022268BCC

PATIENT
  Sex: Female

DRUGS (1)
  1. ALKA SELTZER PLUS NIGHTTIME MAXIMUM STRENGTH COLD FORMULA [Suspect]
     Indication: NASOPHARYNGITIS
     Route: 048
     Dates: start: 20101001

REACTIONS (1)
  - CEREBROVASCULAR ACCIDENT [None]
